FAERS Safety Report 24608861 (Version 1)
Quarter: 2024Q4

REPORT INFORMATION
  Report Type: Spontaneous
  Country: MY (occurrence: MY)
  Receive Date: 20241112
  Receipt Date: 20241112
  Transmission Date: 20250115
  Serious: Yes (Hospitalization, Other)
  Sender: PFIZER
  Company Number: MY-PFIZER INC-202400296384

PATIENT
  Age: 50 Year
  Sex: Female

DRUGS (1)
  1. CRIZOTINIB [Suspect]
     Active Substance: CRIZOTINIB
     Dosage: 250 MG (TOTAL 18 MONTHS)
     Dates: start: 202206, end: 202312

REACTIONS (3)
  - Dyspnoea [Unknown]
  - Pulmonary artery stenosis [Unknown]
  - Neoplasm progression [Unknown]
